FAERS Safety Report 5979548-4 (Version None)
Quarter: 2008Q4

REPORT INFORMATION
  Report Type: 
  Country: None (occurrence: None)
  Receive Date: 20081128
  Receipt Date: 20081114
  Transmission Date: 20090506
  Serious: Yes (Life-Threatening, Hospitalization)
  Sender: FDA-Public Use
  Company Number: OMPQ-NO-0810S-0969

PATIENT
  Age: 81 Year
  Sex: Male
  Weight: 40 kg

DRUGS (3)
  1. OMNIPAQUE 140 [Suspect]
     Indication: DRUG USE FOR UNKNOWN INDICATION
     Dosage: 80 ML, SINGLE DOSE, I.V.
     Route: 042
     Dates: start: 20081020, end: 20081028
  2. MAGNESIUM OXIDE (MAGMITT) [Concomitant]
  3. FAMOTIDINE (CASTER D) [Concomitant]

REACTIONS (6)
  - ANAPHYLACTOID SHOCK [None]
  - BLOOD PRESSURE SYSTOLIC INCREASED [None]
  - BRADYCARDIA [None]
  - CARDIAC ARREST [None]
  - CONVULSION [None]
  - INJECTION SITE PAIN [None]
